FAERS Safety Report 23723748 (Version 1)
Quarter: 2024Q2

REPORT INFORMATION
  Report Type: Spontaneous
  Country: US (occurrence: US)
  Receive Date: 20240409
  Receipt Date: 20240409
  Transmission Date: 20240715
  Serious: No
  Sender: FDA-Public Use
  Company Number: US-HISAMITSU-2023-US-019629

PATIENT
  Age: 74 Year
  Sex: Female
  Weight: 52.16 kg

DRUGS (5)
  1. SPIRONOLACTONE [Concomitant]
     Active Substance: SPIRONOLACTONE
     Route: 061
     Dates: start: 20230704
  2. ATORVASTATIN [Concomitant]
     Active Substance: ATORVASTATIN
  3. CARVEDILOL [Concomitant]
     Active Substance: CARVEDILOL
  4. ENTRESTO [Concomitant]
     Active Substance: SACUBITRIL\VALSARTAN
  5. SALONPAS PAIN RELIEF [Suspect]
     Active Substance: MENTHOL\METHYL SALICYLATE
     Indication: Analgesic therapy
     Dosage: 1 PATCH DAILY
     Route: 061
     Dates: start: 20230704

REACTIONS (1)
  - Intentional product misuse [Unknown]

NARRATIVE: CASE EVENT DATE: 20230704
